FAERS Safety Report 6880298-0 (Version None)
Quarter: 2010Q3

REPORT INFORMATION
  Report Type: 
  Country: None (occurrence: None)
  Receive Date: 20100728
  Receipt Date: 20100722
  Transmission Date: 20110219
  Serious: Yes (Death, Other)
  Sender: FDA-Public Use
  Company Number: US-SANOFI-AVENTIS-2010SA029763

PATIENT
  Age: 93 Year
  Sex: Male
  Weight: 73 kg

DRUGS (4)
  1. LOVENOX [Suspect]
     Indication: ANTICOAGULANT THERAPY
     Route: 065
     Dates: start: 20100220, end: 20100223
  2. SYNTHROID [Concomitant]
     Indication: HYPOTHYROIDISM
  3. LASIX [Concomitant]
  4. POTASSIUM [Concomitant]

REACTIONS (7)
  - CAPILLARY DISORDER [None]
  - DEATH [None]
  - GASTROINTESTINAL HAEMORRHAGE [None]
  - HAEMATEMESIS [None]
  - HAEMOGLOBIN DECREASED [None]
  - INJECTION SITE HAEMATOMA [None]
  - MELAENA [None]
